FAERS Safety Report 25657796 (Version 10)
Quarter: 2025Q3

REPORT INFORMATION
  Report Type: Report from Study
  Country: CA (occurrence: CA)
  Receive Date: 20250808
  Receipt Date: 20250930
  Transmission Date: 20251021
  Serious: Yes (Other)
  Sender: UCB
  Company Number: CA-UCBSA-2025034775

PATIENT
  Age: 57 Year
  Sex: Female

DRUGS (6)
  1. BIMEKIZUMAB [Suspect]
     Active Substance: BIMEKIZUMAB
     Indication: Ankylosing spondylitis
     Dosage: 320 MILLIGRAM, EV 4 WEEKS
     Route: 058
     Dates: start: 20220929, end: 2025
  2. BIMEKIZUMAB [Suspect]
     Active Substance: BIMEKIZUMAB
     Dosage: 160 MILLIGRAM, EV 4 WEEKS
     Route: 058
     Dates: start: 20250511, end: 2025
  3. CITALOPRAM [Concomitant]
     Active Substance: CITALOPRAM
     Indication: Product used for unknown indication
  4. VITAMINS NOS [Concomitant]
     Active Substance: VITAMINS
     Indication: Product used for unknown indication
  5. OMEGA 3 + VITAMIN D [Concomitant]
     Indication: Product used for unknown indication
  6. JWH-018 [Concomitant]
     Active Substance: JWH-018
     Indication: Product used for unknown indication

REACTIONS (26)
  - Streptococcal urinary tract infection [Unknown]
  - Necrosis [Unknown]
  - Orthognathic surgery [Not Recovered/Not Resolved]
  - Tendonitis [Not Recovered/Not Resolved]
  - Pruritus [Recovered/Resolved]
  - Mucosal exfoliation [Recovering/Resolving]
  - Diarrhoea [Recovered/Resolved]
  - Abdominal pain upper [Unknown]
  - Headache [Unknown]
  - Oropharyngeal pain [Unknown]
  - Fatigue [Unknown]
  - Depression [Unknown]
  - Pain [Unknown]
  - Illness [Unknown]
  - Tooth fracture [Unknown]
  - Cough [Unknown]
  - Tooth extraction [Not Recovered/Not Resolved]
  - Wound haemorrhage [Not Recovered/Not Resolved]
  - Oral infection [Not Recovered/Not Resolved]
  - Mouth ulceration [Not Recovered/Not Resolved]
  - Hypoaesthesia oral [Unknown]
  - Back pain [Unknown]
  - Drug ineffective [Unknown]
  - Intentional dose omission [Unknown]
  - Incorrect dose administered [Unknown]
  - Therapeutic response shortened [Unknown]

NARRATIVE: CASE EVENT DATE: 20220929
